FAERS Safety Report 21719133 (Version 1)
Quarter: 2022Q4

REPORT INFORMATION
  Report Type: Report from Study
  Country: CA (occurrence: CA)
  Receive Date: 20221213
  Receipt Date: 20221213
  Transmission Date: 20230113
  Serious: Yes (Other)
  Sender: FDA-Public Use
  Company Number: CA-AMGEN-CANSL2022210045

PATIENT
  Age: 67 Year
  Sex: Female

DRUGS (1)
  1. MVASI [Suspect]
     Active Substance: BEVACIZUMAB-AWWB
     Indication: Meningioma
     Dosage: 1240 MILLIGRAM, Q2WK
     Route: 040
     Dates: start: 20221115

REACTIONS (4)
  - Immunodeficiency [Unknown]
  - Off label use [Unknown]
  - Appetite disorder [Unknown]
  - Nausea [Unknown]
